FAERS Safety Report 10712266 (Version 2)
Quarter: 2015Q3

REPORT INFORMATION
  Report Type: Report from Study
  Country: US (occurrence: US)
  Receive Date: 20150114
  Receipt Date: 20150714
  Transmission Date: 20151125
  Serious: Yes (Death, Life-Threatening, Other)
  Sender: FDA-Public Use
  Company Number: US-GILEAD-2015-0131654

PATIENT
  Age: 78 Year
  Sex: Female

DRUGS (10)
  1. AMBRISENTAN [Suspect]
     Active Substance: AMBRISENTAN
     Indication: PULMONARY ARTERIAL HYPERTENSION
     Dosage: 5 MG, QD
     Route: 065
     Dates: start: 20140412, end: 20150104
  2. ALLOPURINOL. [Concomitant]
     Active Substance: ALLOPURINOL
  3. COREG [Concomitant]
     Active Substance: CARVEDILOL
  4. ASPIRIN                            /00002701/ [Concomitant]
     Active Substance: ASPIRIN
  5. PREMARIN [Concomitant]
     Active Substance: ESTROGENS, CONJUGATED
  6. TYVASO [Concomitant]
     Active Substance: TREPROSTINIL
  7. MVI                                /07504101/ [Concomitant]
  8. SILDENAFIL. [Concomitant]
     Active Substance: SILDENAFIL
  9. NIACIN. [Concomitant]
     Active Substance: NIACIN
  10. LASIX [Concomitant]
     Active Substance: FUROSEMIDE

REACTIONS (1)
  - Death [Fatal]

NARRATIVE: CASE EVENT DATE: 20150104
